FAERS Safety Report 15369752 (Version 4)
Quarter: 2019Q2

REPORT INFORMATION
  Report Type: Spontaneous
  Country: IT (occurrence: IT)
  Receive Date: 20180911
  Receipt Date: 20190410
  Transmission Date: 20190711
  Serious: Yes (Hospitalization, Other)
  Sender: FDA-Public Use
  Company Number: IT-ACCORD-071418

PATIENT
  Age: 61 Year
  Sex: Female

DRUGS (1)
  1. TACROLIMUS. [Suspect]
     Active Substance: TACROLIMUS
     Indication: IMMUNOSUPPRESSION
     Dosage: REDUCED DOSE?4.5 MG BID
     Dates: start: 2016

REACTIONS (9)
  - Escherichia infection [Recovered/Resolved]
  - Enterococcal infection [Recovered/Resolved]
  - Cytomegalovirus infection [Recovered/Resolved]
  - Clostridial infection [Recovered/Resolved]
  - Systemic infection [Recovered/Resolved]
  - Septic shock [Recovered/Resolved]
  - Immune reconstitution inflammatory syndrome [Recovered/Resolved]
  - Cholangitis [Recovered/Resolved]
  - Guillain-Barre syndrome [Recovered/Resolved]

NARRATIVE: CASE EVENT DATE: 2017
